FAERS Safety Report 8619582-9 (Version None)
Quarter: 2012Q3

REPORT INFORMATION
  Report Type: 
  Country: None (occurrence: None)
  Receive Date: 20120824
  Receipt Date: 20120417
  Transmission Date: 20120928
  Serious: No
  Sender: FDA-Public Use
  Company Number: US-ASTRAZENECA-2012SE25413

PATIENT
  Age: 80 Year
  Sex: Female
  Weight: 70.3 kg

DRUGS (4)
  1. SYMBICORT [Suspect]
     Dosage: 80/4.5 MCG TWO PUFFS IN MORNING AND ONE PUFF AT NIGHT
     Route: 055
     Dates: start: 20110101
  2. STOMACH MEDICATION [Concomitant]
     Indication: GASTRIC DISORDER
  3. VERY LIGHT BLOOD PRESSURE MEDICATION [Concomitant]
     Indication: BLOOD PRESSURE ABNORMAL
  4. SYMBICORT [Suspect]
     Indication: ASTHMA
     Dosage: 80/4.5 MCG TWO PUFFS IN MORNING AND TWO PUFFS AT NIGHT
     Route: 055

REACTIONS (3)
  - BODY HEIGHT DECREASED [None]
  - INTENTIONAL DRUG MISUSE [None]
  - DRUG DOSE OMISSION [None]
